FAERS Safety Report 20609679 (Version 1)
Quarter: 2022Q1

REPORT INFORMATION
  Report Type: Spontaneous
  Country: US (occurrence: US)
  Receive Date: 20220318
  Receipt Date: 20220318
  Transmission Date: 20220423
  Serious: No
  Sender: FDA-Public Use
  Company Number: US-JNJFOC-20220319891

PATIENT
  Sex: Male

DRUGS (6)
  1. ERLEADA [Suspect]
     Active Substance: APALUTAMIDE
     Indication: Product used for unknown indication
     Route: 048
  2. LUPRON [Concomitant]
     Active Substance: LEUPROLIDE ACETATE
     Indication: Product used for unknown indication
     Route: 065
  3. DOCETAXEL [Concomitant]
     Active Substance: DOCETAXEL
     Indication: Product used for unknown indication
     Route: 065
  4. OLAPARIB [Concomitant]
     Active Substance: OLAPARIB
     Indication: Product used for unknown indication
     Route: 065
  5. CASODEX [Concomitant]
     Active Substance: BICALUTAMIDE
     Indication: Product used for unknown indication
  6. SIPULEUCEL-T [Concomitant]
     Active Substance: SIPULEUCEL-T
     Indication: Product used for unknown indication

REACTIONS (1)
  - Prostatic specific antigen increased [Unknown]
